FAERS Safety Report 15357299 (Version 1)
Quarter: 2018Q3

REPORT INFORMATION
  Report Type: Spontaneous
  Country: MX (occurrence: MX)
  Receive Date: 20180906
  Receipt Date: 20180906
  Transmission Date: 20181010
  Serious: Yes (Other)
  Sender: FDA-Public Use
  Company Number: MX-ABBVIE-18K-107-2472201-00

PATIENT
  Age: 36 Year
  Sex: Male

DRUGS (6)
  1. VENCLEXTA [Suspect]
     Active Substance: VENETOCLAX
     Indication: CHRONIC MYELOID LEUKAEMIA
     Dosage: DAY ONE
     Route: 048
     Dates: start: 201808, end: 201808
  2. VENCLEXTA [Suspect]
     Active Substance: VENETOCLAX
     Dosage: CONTINUITY DOSE
     Route: 048
     Dates: start: 201808, end: 20180824
  3. NILOTINIB [Concomitant]
     Active Substance: NILOTINIB
     Indication: CHRONIC MYELOID LEUKAEMIA
  4. VENCLEXTA [Suspect]
     Active Substance: VENETOCLAX
     Dosage: DAY THREE
     Route: 048
     Dates: start: 201808, end: 201808
  5. NILOTINIB [Concomitant]
     Active Substance: NILOTINIB
     Indication: CHRONIC MYELOID LEUKAEMIA RECURRENT
     Dates: start: 201808, end: 20180824
  6. VENCLEXTA [Suspect]
     Active Substance: VENETOCLAX
     Indication: CHRONIC MYELOID LEUKAEMIA RECURRENT
     Dosage: DAY TWO
     Route: 048
     Dates: start: 201808, end: 201808

REACTIONS (2)
  - Blast crisis in myelogenous leukaemia [Unknown]
  - Histiocytosis haematophagic [Unknown]

NARRATIVE: CASE EVENT DATE: 201808
